FAERS Safety Report 9664052 (Version 2)
Quarter: 2013Q4

REPORT INFORMATION
  Report Type: Spontaneous
  Country: US (occurrence: US)
  Receive Date: 20131101
  Receipt Date: 20131219
  Transmission Date: 20140711
  Serious: Yes (Death, Hospitalization)
  Sender: FDA-Public Use
  Company Number: US-PFIZER INC-2013310516

PATIENT
  Age: 70 Year
  Sex: Female

DRUGS (12)
  1. SUTENT [Suspect]
     Dosage: 25 MG, QDX28 DAYS OFF X 14 DAYS
     Route: 048
     Dates: start: 20130815
  2. DIOVAN (VALSARTAN) [Concomitant]
     Dosage: UNK
  3. HYDROCORTISONE [Concomitant]
     Dosage: UNK
  4. LOVASTATIN [Concomitant]
     Dosage: UNK
  5. CARBIDOPA [Concomitant]
     Dosage: UNK
  6. PROTONIX [Concomitant]
     Dosage: UNK
  7. TRAZODONE [Concomitant]
     Dosage: UNK
  8. OXYBUTYNIN [Concomitant]
     Dosage: UNK
  9. DIGOXIN [Concomitant]
     Dosage: UNK
  10. ANADROL [Concomitant]
     Dosage: UNK
  11. MACRODANTIN [Concomitant]
     Dosage: UNK
  12. MIRALAX [Concomitant]
     Dosage: UNK

REACTIONS (4)
  - Death [Fatal]
  - Nausea [Unknown]
  - Hypertension [Unknown]
  - Confusional state [Unknown]
